FAERS Safety Report 11657642 (Version 1)
Quarter: 2015Q4

REPORT INFORMATION
  Report Type: Spontaneous
  Country: US (occurrence: CA)
  Receive Date: 20151023
  Receipt Date: 20151023
  Transmission Date: 20160304
  Serious: No
  Sender: FDA-Public Use
  Company Number: CA-GREER LABORATORIES, INC.-1043337

PATIENT
  Age: 19 Year
  Sex: Female

DRUGS (3)
  1. CAT PELT, STANDARDIZED [Suspect]
     Active Substance: FELIS CATUS SKIN
     Route: 058
     Dates: start: 20140207
  2. STANDARDIZED CAT HAIR [Suspect]
     Active Substance: FELIS CATUS HAIR
     Indication: RHINITIS ALLERGIC
     Route: 058
     Dates: start: 20140207
  3. MIXTURE OF STANDARDIZED MITES [Suspect]
     Active Substance: DERMATOPHAGOIDES FARINAE\DERMATOPHAGOIDES PTERONYSSINUS
     Route: 058
     Dates: start: 20140207

REACTIONS (2)
  - Chest discomfort [Recovered/Resolved]
  - Throat tightness [Recovered/Resolved]

NARRATIVE: CASE EVENT DATE: 20150825
